FAERS Safety Report 19511001 (Version 1)
Quarter: 2021Q3

REPORT INFORMATION
  Report Type: Spontaneous
  Country: US (occurrence: US)
  Receive Date: 20210709
  Receipt Date: 20210709
  Transmission Date: 20211014
  Serious: Yes (Other)
  Sender: FDA-Public Use
  Company Number: US-JNJFOC-20210702896

PATIENT
  Sex: Male

DRUGS (1)
  1. ULTRAM [Suspect]
     Active Substance: TRAMADOL HYDROCHLORIDE
     Indication: PRODUCT USED FOR UNKNOWN INDICATION
     Route: 065
     Dates: start: 2006

REACTIONS (5)
  - Compulsions [Unknown]
  - Suicide attempt [Unknown]
  - Alcoholism [Unknown]
  - Craniocerebral injury [Unknown]
  - Nicotine dependence [Unknown]
